FAERS Safety Report 5773420-0 (Version None)
Quarter: 2008Q2

REPORT INFORMATION
  Report Type: 
  Country: None (occurrence: None)
  Receive Date: 20080616
  Receipt Date: 20080311
  Transmission Date: 20081010
  Serious: No
  Sender: FDA-Public Use
  Company Number: US-BAYER-200811049BCC

PATIENT
  Age: 83 Year
  Sex: Female
  Weight: 50 kg

DRUGS (4)
  1. ALEVE [Suspect]
     Indication: ARTHRITIS
     Dosage: AS USED: 440 MG  UNIT DOSE: 220 MG
     Route: 048
     Dates: start: 20080310
  2. LISINOPRIL [Concomitant]
  3. ATENOLOL [Concomitant]
  4. ASPIRIN [Concomitant]

REACTIONS (1)
  - NAUSEA [None]
